FAERS Safety Report 24898927 (Version 3)
Quarter: 2025Q1

REPORT INFORMATION
  Report Type: Spontaneous
  Country: US (occurrence: US)
  Receive Date: 20250129
  Receipt Date: 20250305
  Transmission Date: 20250409
  Serious: No
  Sender: NOVARTIS
  Company Number: US-002147023-NVSC2025US015120

PATIENT
  Sex: Male

DRUGS (2)
  1. MEKINIST [Suspect]
     Active Substance: TRAMETINIB DIMETHYL SULFOXIDE
     Indication: Brain neoplasm malignant
     Dosage: 9 ML, QD (BY MOUTH)
     Route: 048
     Dates: start: 202412
  2. MEKINIST [Suspect]
     Active Substance: TRAMETINIB DIMETHYL SULFOXIDE
     Dosage: 9 ML, QD (BY MOUTH)
     Route: 048
     Dates: start: 202501

REACTIONS (5)
  - Lip blister [Unknown]
  - Rash [Unknown]
  - Dry skin [Unknown]
  - Dermatitis atopic [Unknown]
  - Localised infection [Unknown]
